FAERS Safety Report 7247793-6 (Version None)
Quarter: 2011Q1

REPORT INFORMATION
  Report Type: 
  Country: None (occurrence: None)
  Receive Date: 20110127
  Receipt Date: 20110117
  Transmission Date: 20110831
  Serious: No
  Sender: FDA-Public Use
  Company Number: IR-ELI_LILLY_AND_COMPANY-IR201101005634

PATIENT
  Sex: Female

DRUGS (1)
  1. ATOMOXETINE HCL [Suspect]
     Dosage: 10 MG, UNK

REACTIONS (7)
  - HYPOAESTHESIA [None]
  - INFLAMMATION [None]
  - ECZEMA [None]
  - SKIN HAEMORRHAGE [None]
  - LETHARGY [None]
  - ERYTHEMA [None]
  - HYPERGLYCAEMIA [None]
